FAERS Safety Report 6342203-5 (Version None)
Quarter: 2009Q3

REPORT INFORMATION
  Report Type: 
  Country: None (occurrence: None)
  Receive Date: 20090903
  Receipt Date: 20090903
  Transmission Date: 20100115
  Serious: Yes (Disabling)
  Sender: FDA-Public Use
  Company Number: None

PATIENT
  Age: 68 Year
  Sex: Male
  Weight: 79.3 kg

DRUGS (2)
  1. FAMOTIDINE [Suspect]
     Indication: PROPHYLAXIS
     Dosage: 20MG BID IV
     Route: 042
     Dates: start: 20090825, end: 20090901
  2. FAMOTIDINE [Suspect]
     Indication: STRESS
     Dosage: 20MG BID IV
     Route: 042
     Dates: start: 20090825, end: 20090901

REACTIONS (2)
  - CONFUSIONAL STATE [None]
  - HALLUCINATION [None]
